FAERS Safety Report 10740204 (Version 1)
Quarter: 2015Q1

REPORT INFORMATION
  Report Type: Spontaneous
  Country: IT (occurrence: IT)
  Receive Date: 20150127
  Receipt Date: 20150127
  Transmission Date: 20150721
  Serious: Yes (Other)
  Sender: FDA-Public Use
  Company Number: IT-ACCORD-028232

PATIENT
  Sex: Male

DRUGS (3)
  1. NAVELBINE [Concomitant]
     Active Substance: VINORELBINE TARTRATE
     Indication: PROSTATE CANCER METASTATIC
     Dosage: PER OS FOR 6 MONTHS
  2. DOCETAXEL. [Suspect]
     Active Substance: DOCETAXEL
     Indication: PROSTATE CANCER METASTATIC
  3. EPIRUBICIN [Concomitant]
     Active Substance: EPIRUBICIN
     Indication: PROSTATE CANCER METASTATIC

REACTIONS (3)
  - Chronic kidney disease [Recovering/Resolving]
  - Acute kidney injury [Recovered/Resolved]
  - Hydronephrosis [Unknown]
